FAERS Safety Report 25778204 (Version 1)
Quarter: 2025Q3

REPORT INFORMATION
  Report Type: Report from Study
  Country: NZ (occurrence: NZ)
  Receive Date: 20250909
  Receipt Date: 20250909
  Transmission Date: 20251020
  Serious: Yes (Other)
  Sender: ROCHE
  Company Number: NZ-ROCHE-10000382123

PATIENT
  Sex: Male

DRUGS (2)
  1. VABYSMO [Suspect]
     Active Substance: FARICIMAB-SVOA
     Indication: Product used for unknown indication
     Route: 065
  2. AFLIBERCEPT [Concomitant]
     Active Substance: AFLIBERCEPT

REACTIONS (1)
  - Eye haemorrhage [Recovered/Resolved]
